FAERS Safety Report 7647728-8 (Version None)
Quarter: 2011Q3

REPORT INFORMATION
  Report Type: 
  Country: None (occurrence: None)
  Receive Date: 20110801
  Receipt Date: 20110801
  Transmission Date: 20111222
  Serious: Yes (Disabling, Other)
  Sender: FDA-Public Use
  Company Number: None

PATIENT
  Age: 7 Year
  Sex: Male
  Weight: 23.586 kg

DRUGS (1)
  1. INTUNIV [Suspect]
     Indication: ATTENTION DEFICIT/HYPERACTIVITY DISORDER
     Dosage: 1 MG
     Route: 048
     Dates: start: 20110626, end: 20110731

REACTIONS (6)
  - CRYING [None]
  - FEAR [None]
  - SCREAMING [None]
  - DISTURBANCE IN ATTENTION [None]
  - AGGRESSION [None]
  - URINARY INCONTINENCE [None]
